FAERS Safety Report 25059931 (Version 2)
Quarter: 2025Q1

REPORT INFORMATION
  Report Type: Report from Study
  Country: NL (occurrence: NL)
  Receive Date: 20250310
  Receipt Date: 20250318
  Transmission Date: 20250408
  Serious: Yes (Hospitalization, Other)
  Sender: VERITY PHARMACEUTICALS INC.
  Company Number: NL-VER-202500021

PATIENT
  Sex: Male

DRUGS (3)
  1. TRIPTORELIN PAMOATE [Suspect]
     Active Substance: TRIPTORELIN PAMOATE
     Indication: Prostate cancer
     Dosage: SUSPENSION FOR INJECTION
     Route: 030
     Dates: start: 20240920
  2. TRIPTORELIN PAMOATE [Suspect]
     Active Substance: TRIPTORELIN PAMOATE
     Indication: Prostate cancer
     Dosage: SUSPENSION FOR INJECTION
     Route: 030
     Dates: start: 20250225
  3. TRIPTORELIN PAMOATE [Suspect]
     Active Substance: TRIPTORELIN PAMOATE
     Indication: Prostate cancer
     Dosage: SUSPENSION FOR INJECTION,
     Route: 030
     Dates: start: 20240313

REACTIONS (2)
  - Cystitis [Unknown]
  - Terminal state [Unknown]
